FAERS Safety Report 25582172 (Version 1)
Quarter: 2025Q3

REPORT INFORMATION
  Report Type: Spontaneous
  Country: EU (occurrence: EU)
  Receive Date: 20250719
  Receipt Date: 20250719
  Transmission Date: 20251020
  Serious: Yes (Disabling)
  Sender: CELLTRION
  Company Number: None

PATIENT

DRUGS (3)
  1. INFLIXIMAB [Suspect]
     Active Substance: INFLIXIMAB
     Indication: Proctitis
     Dosage: 120 MG EVERY 7 DAYS; INITIALLY INJECTED SUBCUTANEOUSLY EVERY 2 WEEKS, STARTING ON MAY 6, 2024, THE D
     Route: 058
     Dates: start: 20240409, end: 20240726
  2. MERCAPTOPURIN ORION [Concomitant]
     Indication: Drug specific antibody present
     Route: 048
     Dates: start: 20240613
  3. MERCAPTOPURIN ORION [Concomitant]
     Indication: Proctitis

REACTIONS (6)
  - Gait disturbance [Not Recovered/Not Resolved]
  - Palmoplantar pustulosis [Not Recovered/Not Resolved]
  - Alopecia [Not Recovered/Not Resolved]
  - Psoriasis [Not Recovered/Not Resolved]
  - Pruritus [Not Recovered/Not Resolved]
  - Intentional product use issue [Unknown]

NARRATIVE: CASE EVENT DATE: 20240601
